FAERS Safety Report 19244977 (Version 2)
Quarter: 2021Q2

REPORT INFORMATION
  Report Type: Spontaneous
  Country: US (occurrence: US)
  Receive Date: 20210512
  Receipt Date: 20210623
  Transmission Date: 20210717
  Serious: No
  Sender: FDA-Public Use
  Company Number: US-ASTRAZENECA-2021A375819

PATIENT
  Sex: Female
  Weight: 55.3 kg

DRUGS (1)
  1. BYDUREON BCISE [Suspect]
     Active Substance: EXENATIDE
     Indication: GLYCOSYLATED HAEMOGLOBIN INCREASED
     Route: 058

REACTIONS (9)
  - Drug delivery system issue [Unknown]
  - Injection site mass [Unknown]
  - Device use error [Unknown]
  - Device issue [Unknown]
  - Gastroenteritis viral [Unknown]
  - Weight decreased [Unknown]
  - Injury associated with device [Unknown]
  - Intentional device misuse [Unknown]
  - Viral infection [Unknown]
